FAERS Safety Report 6793101-4 (Version None)
Quarter: 2010Q2

REPORT INFORMATION
  Report Type: 
  Country: None (occurrence: None)
  Receive Date: 20100624
  Receipt Date: 20090914
  Transmission Date: 20101027
  Serious: Yes (Other)
  Sender: FDA-Public Use
  Company Number: US-MYLANLABS-2009S1007620

PATIENT
  Age: 64 Year
  Sex: Female

DRUGS (4)
  1. CLOZAPINE [Suspect]
     Indication: SCHIZOPHRENIA
     Route: 048
     Dates: start: 20080701, end: 20090724
  2. CARBAMAZEPINE [Suspect]
     Indication: CONVULSION
     Route: 048
  3. PHENYTOIN SODIUM [Suspect]
     Indication: CONVULSION
     Route: 048
  4. ZYPREXA [Suspect]
     Route: 048

REACTIONS (1)
  - GRANULOCYTOPENIA [None]
